FAERS Safety Report 13404366 (Version 1)
Quarter: 2017Q2

REPORT INFORMATION
  Report Type: Spontaneous
  Country: FR (occurrence: FR)
  Receive Date: 20170405
  Receipt Date: 20170405
  Transmission Date: 20170830
  Serious: Yes (Hospitalization)
  Sender: FDA-Public Use
  Company Number: FR-SA-2017SA055355

PATIENT
  Age: 66 Year
  Sex: Female

DRUGS (12)
  1. INEXIUM [Concomitant]
     Active Substance: ESOMEPRAZOLE
     Route: 048
  2. LOXAPAC [Suspect]
     Active Substance: LOXAPINE SUCCINATE
     Route: 048
     Dates: start: 20161117, end: 20161218
  3. ESCITALOPRAM OXALATE. [Concomitant]
     Active Substance: ESCITALOPRAM OXALATE
     Route: 048
  4. DORZOLAMIDE [Concomitant]
     Active Substance: DORZOLAMIDE
     Dosage: 20 MG/ML, EYE DROPS IN SOLUTION
     Route: 047
  5. GELTIM [Concomitant]
     Active Substance: TIMOLOL MALEATE
     Dosage: 1 MG / G, SINGLE DOSE OPHTHALMIC GEL
     Route: 047
  6. LASILIX [Concomitant]
     Active Substance: FUROSEMIDE
     Dosage: DIVISIBLE TABLET
     Route: 048
  7. DIFFU K [Concomitant]
     Active Substance: POTASSIUM CHLORIDE
     Dosage: FREQUENCY 6 TIMES/DAY
     Route: 048
  8. PROPRANOLOL [Concomitant]
     Active Substance: PROPRANOLOL HYDROCHLORIDE
     Route: 048
  9. ALDACTONE [Concomitant]
     Active Substance: SPIRONOLACTONE
     Route: 048
  10. LOVENOX [Suspect]
     Active Substance: ENOXAPARIN SODIUM
     Route: 042
  11. ELUDRIL [Suspect]
     Active Substance: CHLORHEXIDINE GLUCONATE\CHLOROBUTANOL
     Indication: INTENTIONAL PRODUCT MISUSE
     Route: 048
     Dates: start: 201612, end: 201612
  12. LODOZ [Concomitant]
     Active Substance: BISOPROLOL FUMARATE\HYDROCHLOROTHIAZIDE
     Dosage: 6.25 MG,1 IN 1 DAY
     Route: 048

REACTIONS (1)
  - Fall [Unknown]

NARRATIVE: CASE EVENT DATE: 20161215
